FAERS Safety Report 9657139 (Version 4)
Quarter: 2014Q1

REPORT INFORMATION
  Report Type: Spontaneous
  Country: GB (occurrence: GB)
  Receive Date: 20131030
  Receipt Date: 20140117
  Transmission Date: 20141002
  Serious: Yes (Hospitalization)
  Sender: FDA-Public Use
  Company Number: GB-DRREDDYS-GER/UKI/13/0034691

PATIENT
  Age: 60 Year
  Sex: Male
  Weight: 103 kg

DRUGS (10)
  1. GEMCITABINE [Suspect]
     Indication: TRANSITIONAL CELL CARCINOMA
     Dates: start: 20130613
  2. CISPLATIN [Suspect]
     Indication: TRANSITIONAL CELL CARCINOMA
     Dates: start: 20130613
  3. TEMSIROLIMUS [Suspect]
     Indication: TRANSITIONAL CELL CARCINOMA
     Dates: start: 20130704, end: 20130912
  4. BONJELA [Concomitant]
     Indication: MOUTH ULCERATION
     Dates: start: 20130716
  5. CALENDULA OFFICINALIS [Concomitant]
     Indication: ANAL FISSURE
     Dates: start: 20130716
  6. CYCLIZINE HYDROCHLORIDE [Concomitant]
     Indication: NAUSEA
     Dates: start: 20130716
  7. FLUCLOXACILLIN SODIUM [Concomitant]
     Indication: PHLEBITIS
     Dates: start: 20130727, end: 20130804
  8. GAVISCON [Concomitant]
     Indication: PRODUCT USED FOR UNKNOWN INDICATION
     Dates: start: 20130718
  9. LAXIDO [Concomitant]
     Indication: CONSTIPATION
     Dates: start: 20130716
  10. METOCLOPRAMIDE [Concomitant]
     Indication: PRODUCT USED FOR UNKNOWN INDICATION
     Dates: start: 20130718

REACTIONS (5)
  - Febrile neutropenia [Recovered/Resolved]
  - Pyrexia [Recovered/Resolved]
  - Neutropenia [Unknown]
  - Neutropenic sepsis [Recovered/Resolved]
  - White blood cell count decreased [Unknown]
